FAERS Safety Report 20994282 (Version 1)
Quarter: 2022Q2

REPORT INFORMATION
  Report Type: Report from Study
  Country: IN (occurrence: IN)
  Receive Date: 20220622
  Receipt Date: 20220622
  Transmission Date: 20220720
  Serious: Yes (Hospitalization)
  Sender: FDA-Public Use
  Company Number: IN-MYLANLABS-2022M1046888

PATIENT
  Age: 41 Year
  Sex: Male

DRUGS (6)
  1. MYCOPHENOLATE MOFETIL [Suspect]
     Active Substance: MYCOPHENOLATE MOFETIL
     Indication: Immunosuppressant drug therapy
     Dosage: UNK
     Route: 065
  2. PREDNISOLONE [Suspect]
     Active Substance: PREDNISOLONE
     Indication: Immunosuppressant drug therapy
     Dosage: 20 MILLIGRAM, QD UNTIL EIGHT WEEKS, THEREAFTER, IT WAS TAPERED EVERY WEEK BY 2.5MG TO REACH THE NADI
     Route: 065
  3. PREDNISOLONE [Suspect]
     Active Substance: PREDNISOLONE
     Dosage: 10 MILLIGRAM, QD
     Route: 065
  4. TACROLIMUS [Suspect]
     Active Substance: TACROLIMUS
     Indication: Immunosuppressant drug therapy
     Dosage: THE TACROLIMUS DOSE WAS ADJUSTED TO MAINTAIN A TROUGH LEVEL OF 8 -12 NG/ML
     Route: 065
  5. BASILIXIMAB [Suspect]
     Active Substance: BASILIXIMAB
     Indication: Immunosuppressant drug therapy
     Dosage: UNK
     Route: 065
  6. EVEROLIMUS [Suspect]
     Active Substance: EVEROLIMUS
     Indication: Prophylaxis against transplant rejection
     Dosage: UNK
     Route: 065

REACTIONS (5)
  - Kidney transplant rejection [Not Recovered/Not Resolved]
  - Transplant rejection [Not Recovered/Not Resolved]
  - Renal transplant failure [Not Recovered/Not Resolved]
  - Polyomavirus-associated nephropathy [Recovering/Resolving]
  - Ureteric stenosis [Recovering/Resolving]
